FAERS Safety Report 6026687-8 (Version None)
Quarter: 2008Q4

REPORT INFORMATION
  Report Type: 
  Country: None (occurrence: None)
  Receive Date: 20081231
  Receipt Date: 20081216
  Transmission Date: 20090506
  Serious: Yes (Death)
  Sender: FDA-Public Use
  Company Number: KV200801178

PATIENT
  Age: 75 Year
  Sex: Male
  Weight: 88.4 kg

DRUGS (10)
  1. ISOSORBIDE MONONITRATE [Suspect]
     Indication: CARDIAC DISORDER
     Dosage: 30 MG, QD, ORAL
     Route: 048
     Dates: end: 20080517
  2. PLAVIX [Concomitant]
  3. FERROUS SULFATE TAB [Concomitant]
  4. ASPIRIN (ACETYLYSALICYLIC ACID) [Concomitant]
  5. ASPIRIN [Concomitant]
  6. FUROSEMIDE [Concomitant]
  7. POTASSIUM (POTASSIUM) [Concomitant]
  8. ALPRAZOLAM [Concomitant]
  9. ARICEPT [Concomitant]
  10. UNSPECIFIED DIABETIC MEDICATION [Concomitant]

REACTIONS (3)
  - CARDIAC FAILURE [None]
  - HYPOTENSION [None]
  - PRODUCT QUALITY ISSUE [None]
